FAERS Safety Report 6988748-6 (Version None)
Quarter: 2010Q3

REPORT INFORMATION
  Report Type: 
  Country: None (occurrence: None)
  Receive Date: 20100916
  Receipt Date: 20100909
  Transmission Date: 20110219
  Serious: Yes (Hospitalization)
  Sender: FDA-Public Use
  Company Number: US-ELI_LILLY_AND_COMPANY-US201009002511

PATIENT
  Age: 68 Year
  Sex: Male

DRUGS (6)
  1. BYETTA [Suspect]
     Indication: TYPE 2 DIABETES MELLITUS
     Dosage: 10 UG, UNK
     Route: 058
  2. METFORMIN [Concomitant]
  3. ACTOS [Concomitant]
  4. ALLOPURINOL [Concomitant]
  5. METHOTREXATE [Concomitant]
  6. LANTUS [Concomitant]

REACTIONS (4)
  - GLYCOSYLATED HAEMOGLOBIN INCREASED [None]
  - OESOPHAGITIS [None]
  - OFF LABEL USE [None]
  - WEIGHT INCREASED [None]
